FAERS Safety Report 19423180 (Version 1)
Quarter: 2021Q2

REPORT INFORMATION
  Report Type: Spontaneous
  Country: US (occurrence: US)
  Receive Date: 20210616
  Receipt Date: 20210616
  Transmission Date: 20210717
  Serious: Yes (Hospitalization)
  Sender: FDA-Public Use
  Company Number: None

PATIENT
  Age: 68 Year
  Sex: Female

DRUGS (2)
  1. COPAXONE [Suspect]
     Active Substance: GLATIRAMER ACETATE
     Indication: MULTIPLE SCLEROSIS
     Dosage: ?          OTHER FREQUENCY:THREE TUNES A WEEK;?
     Route: 058
     Dates: start: 20180504
  2. GLATIRAMER [Concomitant]
     Active Substance: GLATIRAMER

REACTIONS (2)
  - Asthenia [None]
  - Therapy interrupted [None]
